FAERS Safety Report 21743022 (Version 1)
Quarter: 2022Q4

REPORT INFORMATION
  Report Type: Spontaneous
  Country: US (occurrence: US)
  Receive Date: 20221217
  Receipt Date: 20221217
  Transmission Date: 20230113
  Serious: No
  Sender: FDA-Public Use
  Company Number: US-ORGANON-O2212USA000935

PATIENT
  Age: 33 Year
  Sex: Female
  Weight: 57.596 kg

DRUGS (1)
  1. NEXPLANON [Suspect]
     Active Substance: ETONOGESTREL
     Indication: Contraception
     Dosage: 1 IMPLANT, EVERY 3 YEARS,LEFT ARM
     Route: 059
     Dates: start: 20200102

REACTIONS (2)
  - Menometrorrhagia [Not Recovered/Not Resolved]
  - Amenorrhoea [Recovered/Resolved]

NARRATIVE: CASE EVENT DATE: 20200101
